FAERS Safety Report 8063718-8 (Version None)
Quarter: 2011Q4

REPORT INFORMATION
  Report Type: 
  Country: None (occurrence: None)
  Receive Date: 20111221
  Receipt Date: 20111019
  Transmission Date: 20120403
  Serious: Yes (Hospitalization)
  Sender: FDA-Public Use
  Company Number: PHHY2011US53552

PATIENT
  Age: 32 Year
  Sex: Male
  Weight: 68.1 kg

DRUGS (3)
  1. ACETAMINOPHEN W/ HYDROCODONE (HYDROCODONE, PARACETAMOL) TABLET [Concomitant]
  2. EXJADE [Suspect]
     Indication: SICKLE CELL ANAEMIA
     Dosage: 1000MG, DAILY, ORAL
     Route: 048
     Dates: start: 20110606
  3. FOLIC ACID [Concomitant]

REACTIONS (2)
  - ABDOMINAL PAIN UPPER [None]
  - SICKLE CELL ANAEMIA WITH CRISIS [None]
